FAERS Safety Report 10785264 (Version 1)
Quarter: 2015Q1

REPORT INFORMATION
  Report Type: Spontaneous
  Country: US (occurrence: None)
  Receive Date: 20150209
  Receipt Date: 20150209
  Transmission Date: 20150721
  Serious: Yes (Other)
  Sender: FDA-Public Use
  Company Number: 2702750

PATIENT
  Age: 59 Year
  Sex: Female
  Weight: 88.4 kg

DRUGS (3)
  1. VANCOMYCIN HYDROCHLORIDE. [Suspect]
     Active Substance: VANCOMYCIN HYDROCHLORIDE
     Indication: SEPSIS
     Dosage: 1 G GRAM(S) (1 HOUR) INTRAVENOUS (NOT OTHERWISE SPECIFIED)
     Route: 042
     Dates: start: 20141229, end: 20141231
  2. VANCOMYCIN HYDROCHLORIDE. [Suspect]
     Active Substance: VANCOMYCIN HYDROCHLORIDE
     Indication: PNEUMONIA
     Dosage: 1 G GRAM(S) (1 HOUR) INTRAVENOUS (NOT OTHERWISE SPECIFIED)
     Route: 042
     Dates: start: 20141229, end: 20141231
  3. STERILE WATER FOR INJECTION [Suspect]
     Active Substance: WATER
     Indication: MEDICATION DILUTION
     Dosage: NOT REPORTED, UNKNOWN

REACTIONS (7)
  - Acute kidney injury [None]
  - Product colour issue [None]
  - Product contamination physical [None]
  - Nephropathy toxic [None]
  - Product quality issue [None]
  - Incorrect product storage [None]
  - Wrong technique in drug usage process [None]
